FAERS Safety Report 5397430-0 (Version None)
Quarter: 2007Q3

REPORT INFORMATION
  Report Type: 
  Country: None (occurrence: None)
  Receive Date: 20070726
  Receipt Date: 20070724
  Transmission Date: 20080115
  Serious: Yes (Death)
  Sender: FDA-Public Use
  Company Number: US-JNJFOC-20060900275

PATIENT
  Sex: Female
  Weight: 107.05 kg

DRUGS (1)
  1. FLEXERIL [Suspect]
     Indication: DRUG USE FOR UNKNOWN INDICATION
     Dosage: TID AS NECESSARY
     Route: 048

REACTIONS (1)
  - CARDIAC ARREST [None]
